FAERS Safety Report 24805720 (Version 3)
Quarter: 2025Q2

REPORT INFORMATION
  Report Type: Spontaneous
  Country: US (occurrence: US)
  Receive Date: 20250103
  Receipt Date: 20250509
  Transmission Date: 20250716
  Serious: Yes (Hospitalization, Other)
  Sender: PFIZER
  Company Number: US-PFIZER INC-PV202400170667

PATIENT
  Age: 78 Year
  Sex: Female
  Weight: 66.2 kg

DRUGS (12)
  1. TIKOSYN [Suspect]
     Active Substance: DOFETILIDE
     Indication: Atrial fibrillation
     Route: 048
     Dates: start: 202311, end: 202311
  2. BUMETANIDE [Suspect]
     Active Substance: BUMETANIDE
     Indication: Fluid retention
     Dosage: 2 MG, 1X/DAY
     Route: 048
  3. AMIODARONE HYDROCHLORIDE [Suspect]
     Active Substance: AMIODARONE HYDROCHLORIDE
     Indication: Atrial fibrillation
     Dosage: 200 MG, 1X/DAY
     Route: 048
     Dates: start: 202401, end: 20240711
  4. ENTRESTO [Suspect]
     Active Substance: SACUBITRIL\VALSARTAN
     Indication: Atrial fibrillation
     Dosage: 24/26 MG, 2X/DAY/24-26MG, NOW 1/2 TABLET 2X^S/DAY
     Route: 048
     Dates: start: 202311, end: 20240129
  5. ENTRESTO [Suspect]
     Active Substance: SACUBITRIL\VALSARTAN
     Dosage: 13 MG, 2X/DAY (YZ TABLET 24-26MG)
  6. LASIX [Suspect]
     Active Substance: FUROSEMIDE
     Indication: Fluid retention
     Route: 041
  7. JARDIANCE [Suspect]
     Active Substance: EMPAGLIFLOZIN
     Indication: Cardiac failure
     Dosage: 10 MG, 1X/DAY
     Route: 048
     Dates: start: 20240214
  8. SPIRONOLACTONE [Concomitant]
     Active Substance: SPIRONOLACTONE
  9. AMBIEN [Concomitant]
     Active Substance: ZOLPIDEM TARTRATE
     Indication: Insomnia
     Dosage: 10 MG, 1X/DAY
  10. LEVOXYL [Concomitant]
     Active Substance: LEVOTHYROXINE SODIUM
     Indication: Thyroid disorder
     Dosage: ILLEGIBLE, 1X/DAY
  11. TIMOLOL [Concomitant]
     Active Substance: TIMOLOL
     Indication: Glaucoma
     Dosage: 0.5, 2X/DAY
  12. DULOXETINE [Concomitant]
     Active Substance: DULOXETINE
     Indication: Neuropathy peripheral
     Dosage: 90 UG, 1X/DAY

REACTIONS (10)
  - Cardioversion [Recovered/Resolved with Sequelae]
  - Cardiac ablation [Not Recovered/Not Resolved]
  - Ascites [Recovering/Resolving]
  - Dyspnoea [Recovering/Resolving]
  - Weight increased [Recovered/Resolved]
  - Weight decreased [Recovered/Resolved]
  - Blood sodium decreased [Recovered/Resolved]
  - Asthenia [Recovered/Resolved with Sequelae]
  - Drug ineffective [Recovered/Resolved with Sequelae]
  - Fungal infection [Recovered/Resolved]

NARRATIVE: CASE EVENT DATE: 20210101
